FAERS Safety Report 19678672 (Version 2)
Quarter: 2022Q1

REPORT INFORMATION
  Report Type: Spontaneous
  Country: US (occurrence: US)
  Receive Date: 20210809
  Receipt Date: 20220128
  Transmission Date: 20220423
  Serious: No
  Sender: FDA-Public Use
  Company Number: US-PFIZER INC-2021695099

PATIENT
  Age: 78 Year
  Sex: Female
  Weight: 67.13 kg

DRUGS (3)
  1. IBRANCE [Suspect]
     Active Substance: PALBOCICLIB
     Indication: Breast cancer metastatic
     Dosage: 75 MG, CYCLIC (75 MG ONCE A DAY EVERY DAY FOR 21 DAYS)
     Dates: start: 201903
  2. IBRANCE [Suspect]
     Active Substance: PALBOCICLIB
     Dosage: TAKE ONE TABLET BY MOUTH ONCE DAILY WITH OR WITHOUT FOOD FOR 21 DAY ON AND 14 DAYS OFF
     Route: 048
  3. LETROZOLE [Concomitant]
     Active Substance: LETROZOLE
     Dosage: UNK

REACTIONS (2)
  - Off label use [Unknown]
  - Red blood cell count decreased [Unknown]
